FAERS Safety Report 4876609-8 (Version None)
Quarter: 2006Q1

REPORT INFORMATION
  Report Type: 
  Country: None (occurrence: None)
  Receive Date: 20060110
  Receipt Date: 20051216
  Transmission Date: 20060701
  Serious: Yes (Life-Threatening)
  Sender: FDA-Public Use
  Company Number: US-MERCK-0512USA02571

PATIENT
  Age: 68 Year
  Sex: Female

DRUGS (6)
  1. EMEND [Suspect]
     Indication: PROPHYLAXIS OF NAUSEA AND VOMITING
     Route: 048
     Dates: start: 20051215, end: 20051215
  2. EMEND [Suspect]
     Route: 048
     Dates: start: 20051216
  3. EMEND [Suspect]
     Indication: POST PROCEDURAL NAUSEA
     Route: 048
     Dates: start: 20051215, end: 20051215
  4. EMEND [Suspect]
     Route: 048
     Dates: start: 20051216
  5. NEURONTIN [Concomitant]
     Route: 065
  6. [COMPOSITION UNSPECIFIED] [Concomitant]
     Route: 065

REACTIONS (2)
  - DYSPNOEA [None]
  - HYPERHIDROSIS [None]
